FAERS Safety Report 4381700-9 (Version None)
Quarter: 2004Q2

REPORT INFORMATION
  Report Type: 
  Country: None (occurrence: None)
  Receive Date: 20040614
  Receipt Date: 20031209
  Transmission Date: 20050107
  Serious: Yes (Hospitalization)
  Sender: FDA-Public Use
  Company Number: 2003189513US

PATIENT
  Age: 39 Year
  Sex: Female
  Weight: 104.8 kg

DRUGS (3)
  1. ZYVOX [Suspect]
     Indication: STAPHYLOCOCCAL INFECTION
     Dosage: 600 MG, QD, ORAL
     Route: 048
     Dates: start: 20030911, end: 20030920
  2. LITHIUM (LITHIUM) [Concomitant]
  3. ZYPREXA [Concomitant]

REACTIONS (1)
  - ANAEMIA [None]
